FAERS Safety Report 4663701-6 (Version None)
Quarter: 2005Q2

REPORT INFORMATION
  Report Type: 
  Country: None (occurrence: None)
  Receive Date: 20050516
  Receipt Date: 20050509
  Transmission Date: 20051028
  Serious: Yes (Hospitalization, Other)
  Sender: FDA-Public Use
  Company Number: 163-20785-04100358

PATIENT
  Age: 59 Year
  Sex: Female
  Weight: 68.2 kg

DRUGS (19)
  1. THALOMID [Suspect]
     Indication: MULTIPLE MYELOMA
     Dosage: SEE IMAGE
     Route: 048
     Dates: start: 20040629, end: 20040702
  2. THALOMID [Suspect]
     Indication: MULTIPLE MYELOMA
     Dosage: SEE IMAGE
     Route: 048
     Dates: start: 20040803, end: 20040806
  3. THALOMID [Suspect]
     Indication: MULTIPLE MYELOMA
     Dosage: SEE IMAGE
     Route: 048
     Dates: start: 20040831, end: 20040903
  4. VELCADE [Suspect]
     Indication: MULTIPLE MYELOMA
     Dates: start: 20040626, end: 20040101
  5. VELCADE [Suspect]
     Indication: MULTIPLE MYELOMA
     Dates: start: 20040731, end: 20040101
  6. DEXAMETHASONE [Suspect]
     Indication: MULTIPLE MYELOMA
     Dates: start: 20040731, end: 20040101
  7. DEXAMETHASONE [Suspect]
     Indication: MULTIPLE MYELOMA
     Dates: start: 20040626
  8. ADRIAMYCIN PFS [Suspect]
     Indication: MULTIPLE MYELOMA
     Dates: start: 20040626, end: 20040101
  9. ADRIAMYCIN PFS [Suspect]
     Indication: MULTIPLE MYELOMA
     Dates: start: 20040731, end: 20040101
  10. CYCLOPHOSPHAMIDE [Suspect]
     Indication: MULTIPLE MYELOMA
     Dates: start: 20040626, end: 20040101
  11. CYCLOPHOSPHAMIDE [Suspect]
     Indication: MULTIPLE MYELOMA
     Dates: start: 20040731, end: 20040101
  12. ETOPOSIDE [Suspect]
     Indication: MULTIPLE MYELOMA
     Dates: start: 20040626, end: 20040101
  13. ETOPOSIDE [Suspect]
     Indication: MULTIPLE MYELOMA
     Dates: start: 20040731, end: 20040101
  14. MELPHALAN (MELPHALAN) [Suspect]
     Indication: MULTIPLE MYELOMA
     Dosage: 350 MG, INTRAVENOUS
     Route: 042
     Dates: start: 20040909
  15. ACYCLOVIR [Concomitant]
  16. TEQUIN [Concomitant]
  17. MULTIVITAMIN [Concomitant]
  18. PREMARIN [Concomitant]
  19. G-CSF (GRANULOCYTE COLONY STIMULATING FACTOR) [Concomitant]

REACTIONS (7)
  - BLOOD CREATININE INCREASED [None]
  - GRAND MAL CONVULSION [None]
  - LEUKOENCEPHALOPATHY [None]
  - MUCOSAL INFLAMMATION [None]
  - PYREXIA [None]
  - STEM CELL TRANSPLANT [None]
  - SYNCOPE [None]
